FAERS Safety Report 4969135-9 (Version None)
Quarter: 2006Q2

REPORT INFORMATION
  Report Type: 
  Country: None (occurrence: None)
  Receive Date: 20060411
  Receipt Date: 20050429
  Transmission Date: 20061013
  Serious: No
  Sender: FDA-Public Use
  Company Number: US-BRISTOL-MYERS SQUIBB COMPANY-12950952

PATIENT
  Age: 75 Year
  Sex: Female
  Weight: 72 kg

DRUGS (13)
  1. PARAPLATIN [Suspect]
     Indication: SMALL CELL LUNG CANCER STAGE UNSPECIFIED
     Dosage: START DATE:  30-MAR-2005
     Route: 042
     Dates: start: 20050426, end: 20050426
  2. DEXAMETHASONE [Concomitant]
     Indication: PREMEDICATION
     Route: 048
  3. BENADRYL [Concomitant]
     Indication: PREMEDICATION
     Route: 048
  4. COMPAZINE [Concomitant]
     Indication: PREMEDICATION
     Route: 048
  5. ETOPOSIDE [Concomitant]
     Route: 042
  6. ASPIRIN [Concomitant]
  7. LIPITOR [Concomitant]
  8. CALCIUM GLUCONATE [Concomitant]
  9. CLOPIDOGREL BISULFATE [Concomitant]
  10. ISOSORBIDE [Concomitant]
  11. OXYBUTYNIN [Concomitant]
  12. QUININE SULFATE [Concomitant]
  13. RANITIDINE [Concomitant]

REACTIONS (2)
  - EPHELIDES [None]
  - SKIN EXFOLIATION [None]
